FAERS Safety Report 10444244 (Version 2)
Quarter: 2014Q3

REPORT INFORMATION
  Report Type: Report from Study
  Country: US (occurrence: US)
  Receive Date: 20140910
  Receipt Date: 20140910
  Transmission Date: 20150326
  Serious: Yes (Other)
  Sender: FDA-Public Use
  Company Number: US-ROCHE-1073698

PATIENT

DRUGS (3)
  1. BEVACIZUMAB [Suspect]
     Active Substance: BEVACIZUMAB
     Indication: NON-SMALL CELL LUNG CANCER
     Dosage: ON DAY 1 OF EACH 21 DAY CYCLE
     Route: 065
  2. CARBOPLATIN. [Suspect]
     Active Substance: CARBOPLATIN
     Indication: NON-SMALL CELL LUNG CANCER
     Dosage: 6 AUC ON DAY 1 OF EACH 21 DAY CYCLE
     Route: 065
  3. PEMETREXED [Suspect]
     Active Substance: PEMETREXED
     Indication: NON-SMALL CELL LUNG CANCER
     Dosage: ON DAY 1 OF EACH 21 DAY CYCLE
     Route: 065

REACTIONS (22)
  - Abdominal pain [Unknown]
  - Dyspnoea [Unknown]
  - Fracture [Unknown]
  - Ventricular tachycardia [Unknown]
  - Small intestinal haemorrhage [Unknown]
  - Lower gastrointestinal haemorrhage [Unknown]
  - Neutropenia [Unknown]
  - Hypertension [Unknown]
  - Embolism [Unknown]
  - Anaemia [Unknown]
  - Disease progression [Unknown]
  - Sepsis [Unknown]
  - Fatigue [Unknown]
  - Ischaemia [Unknown]
  - Dehydration [Unknown]
  - Pulmonary haemorrhage [Unknown]
  - Thrombocytopenia [Unknown]
  - Leukopenia [Unknown]
  - Myocardial ischaemia [Unknown]
  - Lymphopenia [Unknown]
  - Thrombosis [Unknown]
  - Haemorrhage [Unknown]
